FAERS Safety Report 10868459 (Version 2)
Quarter: 2015Q1

REPORT INFORMATION
  Report Type: Spontaneous
  Country: ES (occurrence: ES)
  Receive Date: 20150225
  Receipt Date: 20150311
  Transmission Date: 20150721
  Serious: No
  Sender: FDA-Public Use
  Company Number: ES-EISAI MEDICAL RESEARCH-EC-2015-004294

PATIENT
  Age: 28 Year
  Sex: Female

DRUGS (4)
  1. ZONEGRAN [Suspect]
     Active Substance: ZONISAMIDE
     Dosage: DOSE INCREASED
     Route: 048
     Dates: start: 2014, end: 2014
  2. ZONEGRAN [Suspect]
     Active Substance: ZONISAMIDE
     Indication: EPILEPSY
     Dosage: UNKNOWN
     Route: 048
     Dates: start: 201404, end: 2014
  3. ZONEGRAN [Suspect]
     Active Substance: ZONISAMIDE
     Dosage: 100 MG
     Route: 048
     Dates: start: 2014, end: 201411
  4. LAMICTAL [Concomitant]
     Active Substance: LAMOTRIGINE
     Indication: EPILEPSY
     Dosage: UNKNOWN
     Dates: start: 2006

REACTIONS (3)
  - Blister [Unknown]
  - Skin fissures [Unknown]
  - Eczema [Unknown]

NARRATIVE: CASE EVENT DATE: 201406
